FAERS Safety Report 8676695 (Version 2)
Quarter: 2012Q4

REPORT INFORMATION
  Report Type: 
  Country: US (occurrence: US)
  Receive Date: 20120723
  Receipt Date: 20120903
  Transmission Date: 20130627
  Serious: No
  Sender: FDA-Public Use
  Company Number: US-BIOGENIDEC-2012BI025540

PATIENT
  Age: 38 None
  Sex: Female

DRUGS (1)
  1. TYSABRI [Suspect]
     Indication: MULTIPLE SCLEROSIS
     Route: 042
     Dates: start: 20081029, end: 20120514

REACTIONS (5)
  - Alcoholism [Unknown]
  - Endometriosis [Unknown]
  - Pain [Unknown]
  - Hepatic steatosis [Unknown]
  - Laboratory test abnormal [Unknown]
